FAERS Safety Report 11944694 (Version 2)
Quarter: 2016Q1

REPORT INFORMATION
  Report Type: Spontaneous
  Country: US (occurrence: US)
  Receive Date: 20160125
  Receipt Date: 20160217
  Transmission Date: 20160526
  Serious: Yes (Other)
  Sender: FDA-Public Use
  Company Number: US-009507513-1601USA007589

PATIENT
  Age: 55 Year
  Sex: Female
  Weight: 53.52 kg

DRUGS (4)
  1. AMBIEN [Concomitant]
     Active Substance: ZOLPIDEM TARTRATE
     Dosage: NOT TAKEN WITH BELSOMRA
  2. XANAX [Concomitant]
     Active Substance: ALPRAZOLAM
     Dosage: NOT TAKEN WITHIN 36 HOURS OF BELSOMRA
  3. ESTRADIOL. [Concomitant]
     Active Substance: ESTRADIOL
     Dosage: TAKEN AT SAME TIME AS BELSOMRA DOSE
     Route: 048
  4. BELSOMRA [Suspect]
     Active Substance: SUVOREXANT
     Indication: INSOMNIA
     Dosage: 1 PILL, ONCE DAILY, TAKEN BY MOUTH, 30 MINUTES BEFORE BED
     Route: 048
     Dates: start: 20150317, end: 20150317

REACTIONS (13)
  - Abdominal discomfort [Recovering/Resolving]
  - Diarrhoea [Recovering/Resolving]
  - Agitation [Recovering/Resolving]
  - Bruxism [Recovering/Resolving]
  - Confusional state [Recovering/Resolving]
  - Decreased appetite [Recovering/Resolving]
  - Disturbance in attention [Recovering/Resolving]
  - Insomnia [Recovering/Resolving]
  - Night sweats [Recovering/Resolving]
  - Depression [Recovering/Resolving]
  - Hallucination [Recovering/Resolving]
  - Hypoaesthesia [Recovering/Resolving]
  - Mental impairment [Recovering/Resolving]

NARRATIVE: CASE EVENT DATE: 20150317
